FAERS Safety Report 18419160 (Version 1)
Quarter: 2020Q4

REPORT INFORMATION
  Report Type: Spontaneous
  Country: US (occurrence: US)
  Receive Date: 20201023
  Receipt Date: 20201023
  Transmission Date: 20210114
  Serious: Yes (Other)
  Sender: FDA-Public Use
  Company Number: None

PATIENT
  Age: 50 Year
  Sex: Female
  Weight: 62.1 kg

DRUGS (3)
  1. DOXYCYCLINE. [Suspect]
     Active Substance: DOXYCYCLINE
     Indication: CELLULITIS
     Dosage: ?          QUANTITY:14 CAPSULE(S);?
     Route: 048
     Dates: start: 20201007, end: 20201010
  2. TOPROL XL [Concomitant]
     Active Substance: METOPROLOL SUCCINATE
  3. DOXYCYCLINE. [Suspect]
     Active Substance: DOXYCYCLINE
     Indication: PRODUCT USED FOR UNKNOWN INDICATION
     Dosage: ?          QUANTITY:14 CAPSULE(S);?
     Route: 048
     Dates: start: 20201007, end: 20201010

REACTIONS (15)
  - Vertigo [None]
  - Neck pain [None]
  - Ear pain [None]
  - Vision blurred [None]
  - Head discomfort [None]
  - Chest pain [None]
  - Fatigue [None]
  - Anxiety [None]
  - Disorientation [None]
  - Tremor [None]
  - Gait inability [None]
  - Hypertension [None]
  - Nausea [None]
  - Pain in jaw [None]
  - Headache [None]

NARRATIVE: CASE EVENT DATE: 20201010
